FAERS Safety Report 15832102 (Version 1)
Quarter: 2019Q1

REPORT INFORMATION
  Report Type: Spontaneous
  Country: US (occurrence: US)
  Receive Date: 20190115
  Receipt Date: 20190115
  Transmission Date: 20190417
  Serious: Yes (Life-Threatening, Hospitalization, Other)
  Sender: FDA-Public Use
  Company Number: None

PATIENT
  Age: 68 Year
  Sex: Male
  Weight: 70.4 kg

DRUGS (5)
  1. ASPIRIN 81MG DAILY [Concomitant]
  2. INTEGRILIN [Suspect]
     Active Substance: EPTIFIBATIDE
     Indication: ANTIPLATELET THERAPY
     Dosage: ?          OTHER FREQUENCY:2/MCG/KG/MIN;?
     Route: 041
     Dates: start: 20190103, end: 20190111
  3. FAMOTIDINE 20MG BID [Concomitant]
  4. PANTOPRAZOLE 40MG BID [Concomitant]
  5. HEPARIN 12UNITS/KG/HR [Concomitant]
     Dates: start: 20190103, end: 20190103

REACTIONS (2)
  - Thrombocytopenia [None]
  - Autoantibody positive [None]

NARRATIVE: CASE EVENT DATE: 20190111
